FAERS Safety Report 23557998 (Version 7)
Quarter: 2025Q2

REPORT INFORMATION
  Report Type: Spontaneous
  Country: CA (occurrence: CA)
  Receive Date: 20240223
  Receipt Date: 20250618
  Transmission Date: 20250716
  Serious: Yes (Death, Life-Threatening, Hospitalization, Disabling, Congenital Anomaly, Other)
  Sender: AMGEN
  Company Number: CA-002147023-NVSC2024CA031690

PATIENT
  Age: 40 Year
  Sex: Female

DRUGS (463)
  1. AIMOVIG [Suspect]
     Active Substance: ERENUMAB-AOOE
     Indication: Migraine
     Route: 065
  2. ENBREL [Suspect]
     Active Substance: ETANERCEPT
     Indication: Rheumatoid arthritis
     Route: 058
  3. ENBREL [Suspect]
     Active Substance: ETANERCEPT
     Route: 065
  4. ENBREL [Suspect]
     Active Substance: ETANERCEPT
     Route: 065
  5. ENBREL [Suspect]
     Active Substance: ETANERCEPT
     Route: 058
  6. ENBREL [Suspect]
     Active Substance: ETANERCEPT
     Dosage: 10 MG, QW
     Route: 065
  7. ENBREL [Suspect]
     Active Substance: ETANERCEPT
     Route: 058
  8. ENBREL [Suspect]
     Active Substance: ETANERCEPT
     Route: 058
  9. ENBREL [Suspect]
     Active Substance: ETANERCEPT
     Route: 058
  10. ENBREL [Suspect]
     Active Substance: ETANERCEPT
     Dosage: 50 MG, QW
     Route: 065
  11. RITUXIMAB [Suspect]
     Active Substance: RITUXIMAB
     Indication: Rheumatoid arthritis
     Route: 042
  12. RITUXIMAB [Suspect]
     Active Substance: RITUXIMAB
     Dosage: 2 G, QD
     Route: 065
  13. RITUXIMAB [Suspect]
     Active Substance: RITUXIMAB
     Dosage: 2000 MG, QD
     Route: 040
  14. RITUXIMAB [Suspect]
     Active Substance: RITUXIMAB
     Dosage: 2000 MG, QD
     Route: 065
  15. RITUXIMAB [Suspect]
     Active Substance: RITUXIMAB
     Route: 058
  16. RITUXIMAB [Suspect]
     Active Substance: RITUXIMAB
     Route: 043
  17. RITUXIMAB [Suspect]
     Active Substance: RITUXIMAB
     Route: 065
  18. RITUXIMAB [Suspect]
     Active Substance: RITUXIMAB
     Route: 016
  19. RITUXIMAB [Suspect]
     Active Substance: RITUXIMAB
     Route: 016
  20. RITUXIMAB [Suspect]
     Active Substance: RITUXIMAB
     Route: 016
  21. RITUXIMAB [Suspect]
     Active Substance: RITUXIMAB
     Route: 043
  22. RITUXIMAB [Suspect]
     Active Substance: RITUXIMAB
     Dosage: 2000 MG, QD
     Route: 040
  23. RITUXIMAB [Suspect]
     Active Substance: RITUXIMAB
     Route: 058
  24. RITUXIMAB [Suspect]
     Active Substance: RITUXIMAB
     Route: 065
  25. RITUXIMAB [Suspect]
     Active Substance: RITUXIMAB
     Dosage: 2000 MG, QD
     Route: 040
  26. RITUXIMAB [Suspect]
     Active Substance: RITUXIMAB
     Route: 043
  27. RITUXIMAB [Suspect]
     Active Substance: RITUXIMAB
     Route: 040
  28. ADALIMUMAB [Suspect]
     Active Substance: ADALIMUMAB
     Indication: Rheumatoid arthritis
     Route: 058
  29. ADALIMUMAB [Suspect]
     Active Substance: ADALIMUMAB
     Route: 058
  30. ADALIMUMAB [Suspect]
     Active Substance: ADALIMUMAB
     Route: 058
  31. APREMILAST [Suspect]
     Active Substance: APREMILAST
     Indication: Rheumatoid arthritis
     Route: 065
  32. APREMILAST [Suspect]
     Active Substance: APREMILAST
     Dosage: 6 MG, QD
     Route: 065
  33. INFLIXIMAB [Suspect]
     Active Substance: INFLIXIMAB
     Indication: Rheumatoid arthritis
     Route: 040
  34. INFLIXIMAB [Suspect]
     Active Substance: INFLIXIMAB
     Route: 040
  35. INFLIXIMAB [Suspect]
     Active Substance: INFLIXIMAB
     Route: 040
  36. INFLIXIMAB [Suspect]
     Active Substance: INFLIXIMAB
     Route: 065
  37. INFLIXIMAB [Suspect]
     Active Substance: INFLIXIMAB
     Route: 040
  38. COSENTYX [Suspect]
     Active Substance: SECUKINUMAB
     Indication: Rheumatoid arthritis
     Route: 065
  39. COSENTYX [Suspect]
     Active Substance: SECUKINUMAB
     Indication: Psoriatic arthropathy
     Route: 065
  40. COSENTYX [Suspect]
     Active Substance: SECUKINUMAB
     Route: 065
  41. COSENTYX [Suspect]
     Active Substance: SECUKINUMAB
     Route: 065
  42. COSENTYX [Suspect]
     Active Substance: SECUKINUMAB
     Route: 065
  43. DICLOFENAC SODIUM [Suspect]
     Active Substance: DICLOFENAC SODIUM
     Indication: Product used for unknown indication
     Route: 065
  44. DICLOFENAC SODIUM [Suspect]
     Active Substance: DICLOFENAC SODIUM
     Route: 065
  45. DICLOFENAC SODIUM [Suspect]
     Active Substance: DICLOFENAC SODIUM
     Route: 065
  46. DICLOFENAC SODIUM [Suspect]
     Active Substance: DICLOFENAC SODIUM
     Route: 058
  47. ACETAMINOPHEN [Suspect]
     Active Substance: ACETAMINOPHEN
     Indication: Rheumatoid arthritis
     Route: 065
  48. ACETAMINOPHEN [Suspect]
     Active Substance: ACETAMINOPHEN
     Route: 065
  49. ACETAMINOPHEN [Suspect]
     Active Substance: ACETAMINOPHEN
     Route: 065
  50. ACETAMINOPHEN [Suspect]
     Active Substance: ACETAMINOPHEN
     Route: 065
  51. ACTEMRA [Suspect]
     Active Substance: TOCILIZUMAB
     Indication: Rheumatoid arthritis
     Route: 058
  52. ACTEMRA [Suspect]
     Active Substance: TOCILIZUMAB
     Route: 058
  53. ACTEMRA [Suspect]
     Active Substance: TOCILIZUMAB
     Route: 040
  54. ACTEMRA [Suspect]
     Active Substance: TOCILIZUMAB
     Route: 040
  55. ACTEMRA [Suspect]
     Active Substance: TOCILIZUMAB
     Route: 016
  56. ACTEMRA [Suspect]
     Active Substance: TOCILIZUMAB
     Route: 040
  57. ACTEMRA [Suspect]
     Active Substance: TOCILIZUMAB
     Route: 040
  58. ACTEMRA [Suspect]
     Active Substance: TOCILIZUMAB
     Dosage: 25 MG, QW
     Route: 058
  59. ACTEMRA [Suspect]
     Active Substance: TOCILIZUMAB
     Route: 058
  60. ACTEMRA [Suspect]
     Active Substance: TOCILIZUMAB
     Route: 065
  61. ACTEMRA [Suspect]
     Active Substance: TOCILIZUMAB
     Route: 058
  62. ACTEMRA [Suspect]
     Active Substance: TOCILIZUMAB
     Route: 058
  63. ACTEMRA [Suspect]
     Active Substance: TOCILIZUMAB
     Route: 040
  64. ACTEMRA [Suspect]
     Active Substance: TOCILIZUMAB
     Route: 058
  65. ACTEMRA [Suspect]
     Active Substance: TOCILIZUMAB
     Route: 058
  66. ACTEMRA [Suspect]
     Active Substance: TOCILIZUMAB
     Route: 040
  67. ACTEMRA [Suspect]
     Active Substance: TOCILIZUMAB
     Route: 065
  68. ACTEMRA [Suspect]
     Active Substance: TOCILIZUMAB
     Route: 058
  69. ACTEMRA [Suspect]
     Active Substance: TOCILIZUMAB
     Route: 065
  70. ACTEMRA [Suspect]
     Active Substance: TOCILIZUMAB
     Route: 040
  71. ACTEMRA [Suspect]
     Active Substance: TOCILIZUMAB
     Route: 058
  72. ALENDRONIC ACID [Suspect]
     Active Substance: ALENDRONIC ACID
     Indication: Rheumatoid arthritis
     Route: 065
  73. ALENDRONIC ACID [Suspect]
     Active Substance: ALENDRONIC ACID
     Route: 065
  74. ALENDRONIC ACID [Suspect]
     Active Substance: ALENDRONIC ACID
     Route: 065
  75. ALENDRONIC ACID [Suspect]
     Active Substance: ALENDRONIC ACID
     Route: 016
  76. ALENDRONIC ACID [Suspect]
     Active Substance: ALENDRONIC ACID
     Route: 065
  77. ALENDRONIC ACID [Suspect]
     Active Substance: ALENDRONIC ACID
     Route: 048
  78. ALENDRONIC ACID [Suspect]
     Active Substance: ALENDRONIC ACID
     Route: 048
  79. ALENDRONIC ACID [Suspect]
     Active Substance: ALENDRONIC ACID
     Route: 048
  80. ALENDRONIC ACID [Suspect]
     Active Substance: ALENDRONIC ACID
     Route: 065
  81. DICLOFENAC [Suspect]
     Active Substance: DICLOFENAC
     Indication: Product used for unknown indication
     Route: 065
  82. LEFLUNOMIDE [Suspect]
     Active Substance: LEFLUNOMIDE
     Indication: Rheumatoid arthritis
     Route: 048
  83. LEFLUNOMIDE [Suspect]
     Active Substance: LEFLUNOMIDE
     Route: 065
  84. LEFLUNOMIDE [Suspect]
     Active Substance: LEFLUNOMIDE
     Route: 065
  85. PREDNISONE [Suspect]
     Active Substance: PREDNISONE
     Indication: Rheumatoid arthritis
     Route: 048
  86. PREDNISONE [Suspect]
     Active Substance: PREDNISONE
     Dosage: 20 MG, QD
     Route: 048
  87. PREDNISONE [Suspect]
     Active Substance: PREDNISONE
     Route: 048
  88. PREDNISONE [Suspect]
     Active Substance: PREDNISONE
     Route: 065
  89. PREDNISONE [Suspect]
     Active Substance: PREDNISONE
     Route: 065
  90. PREDNISONE [Suspect]
     Active Substance: PREDNISONE
     Route: 065
  91. PREDNISONE [Suspect]
     Active Substance: PREDNISONE
     Route: 065
  92. PREDNISONE [Suspect]
     Active Substance: PREDNISONE
     Route: 048
  93. PREDNISONE [Suspect]
     Active Substance: PREDNISONE
     Route: 048
  94. ARAVA [Suspect]
     Active Substance: LEFLUNOMIDE
     Indication: Rheumatoid arthritis
     Route: 065
  95. ARAVA [Suspect]
     Active Substance: LEFLUNOMIDE
     Route: 065
  96. ARAVA [Suspect]
     Active Substance: LEFLUNOMIDE
     Route: 065
  97. ARAVA [Suspect]
     Active Substance: LEFLUNOMIDE
     Route: 048
  98. ARAVA [Suspect]
     Active Substance: LEFLUNOMIDE
     Route: 048
  99. ARAVA [Suspect]
     Active Substance: LEFLUNOMIDE
     Dosage: 20 MG, QD
     Route: 048
  100. ARAVA [Suspect]
     Active Substance: LEFLUNOMIDE
     Route: 048
  101. ATOMOXETINE [Suspect]
     Active Substance: ATOMOXETINE
     Indication: Migraine
     Route: 065
  102. ATOMOXETINE [Suspect]
     Active Substance: ATOMOXETINE
     Route: 065
  103. AZATHIOPRINE SODIUM [Suspect]
     Active Substance: AZATHIOPRINE SODIUM
     Indication: Product used for unknown indication
     Route: 065
  104. BERINERT [Suspect]
     Active Substance: HUMAN C1-ESTERASE INHIBITOR
     Indication: Product used for unknown indication
     Route: 065
  105. BOTULINUM TOXIN TYPE A [Suspect]
     Active Substance: BOTULINUM TOXIN TYPE A
     Indication: Product used for unknown indication
     Route: 065
  106. BUTRANS [Suspect]
     Active Substance: BUPRENORPHINE
     Indication: Product used for unknown indication
     Route: 065
  107. CALCIUM CARBONATE [Suspect]
     Active Substance: CALCIUM CARBONATE
     Indication: Product used for unknown indication
     Route: 065
  108. CANDESARTAN [Suspect]
     Active Substance: CANDESARTAN
     Indication: Migraine
     Route: 048
  109. CERTOLIZUMAB PEGOL [Suspect]
     Active Substance: CERTOLIZUMAB PEGOL
     Indication: Product used for unknown indication
     Route: 058
  110. CERTOLIZUMAB PEGOL [Suspect]
     Active Substance: CERTOLIZUMAB PEGOL
     Route: 065
  111. CERTOLIZUMAB PEGOL [Suspect]
     Active Substance: CERTOLIZUMAB PEGOL
     Route: 058
  112. CERTOLIZUMAB PEGOL [Suspect]
     Active Substance: CERTOLIZUMAB PEGOL
     Route: 065
  113. CERTOLIZUMAB PEGOL [Suspect]
     Active Substance: CERTOLIZUMAB PEGOL
     Route: 058
  114. CERTOLIZUMAB PEGOL [Suspect]
     Active Substance: CERTOLIZUMAB PEGOL
     Route: 065
  115. CERTOLIZUMAB PEGOL [Suspect]
     Active Substance: CERTOLIZUMAB PEGOL
     Route: 065
  116. CETIRIZINE HYDROCHLORIDE [Suspect]
     Active Substance: CETIRIZINE HYDROCHLORIDE
     Indication: Rheumatoid arthritis
     Route: 065
  117. CETIRIZINE HYDROCHLORIDE [Suspect]
     Active Substance: CETIRIZINE HYDROCHLORIDE
     Route: 065
  118. CETIRIZINE HYDROCHLORIDE [Suspect]
     Active Substance: CETIRIZINE HYDROCHLORIDE
     Route: 065
  119. CETIRIZINE HYDROCHLORIDE [Suspect]
     Active Substance: CETIRIZINE HYDROCHLORIDE
     Route: 065
  120. CETIRIZINE HYDROCHLORIDE [Suspect]
     Active Substance: CETIRIZINE HYDROCHLORIDE
     Route: 065
  121. CETIRIZINE HYDROCHLORIDE [Suspect]
     Active Substance: CETIRIZINE HYDROCHLORIDE
     Route: 048
  122. CETIRIZINE HYDROCHLORIDE [Suspect]
     Active Substance: CETIRIZINE HYDROCHLORIDE
     Route: 065
  123. CETIRIZINE HYDROCHLORIDE [Suspect]
     Active Substance: CETIRIZINE HYDROCHLORIDE
     Route: 065
  124. CETIRIZINE HYDROCHLORIDE [Suspect]
     Active Substance: CETIRIZINE HYDROCHLORIDE
     Route: 065
  125. CETIRIZINE HYDROCHLORIDE [Suspect]
     Active Substance: CETIRIZINE HYDROCHLORIDE
     Route: 048
  126. CETIRIZINE HYDROCHLORIDE [Suspect]
     Active Substance: CETIRIZINE HYDROCHLORIDE
     Route: 048
  127. CETIRIZINE HYDROCHLORIDE [Suspect]
     Active Substance: CETIRIZINE HYDROCHLORIDE
     Route: 065
  128. CETIRIZINE HYDROCHLORIDE [Suspect]
     Active Substance: CETIRIZINE HYDROCHLORIDE
     Route: 065
  129. CETIRIZINE HYDROCHLORIDE [Suspect]
     Active Substance: CETIRIZINE HYDROCHLORIDE
     Route: 065
  130. CETIRIZINE HYDROCHLORIDE [Suspect]
     Active Substance: CETIRIZINE HYDROCHLORIDE
     Route: 065
  131. CETIRIZINE HYDROCHLORIDE [Suspect]
     Active Substance: CETIRIZINE HYDROCHLORIDE
     Route: 048
  132. CETIRIZINE HYDROCHLORIDE [Suspect]
     Active Substance: CETIRIZINE HYDROCHLORIDE
     Route: 048
  133. CETIRIZINE HYDROCHLORIDE [Suspect]
     Active Substance: CETIRIZINE HYDROCHLORIDE
     Route: 048
  134. CETIRIZINE HYDROCHLORIDE [Suspect]
     Active Substance: CETIRIZINE HYDROCHLORIDE
     Route: 065
  135. CETIRIZINE HYDROCHLORIDE [Suspect]
     Active Substance: CETIRIZINE HYDROCHLORIDE
     Route: 048
  136. CETIRIZINE HYDROCHLORIDE [Suspect]
     Active Substance: CETIRIZINE HYDROCHLORIDE
     Route: 065
  137. CETIRIZINE HYDROCHLORIDE [Suspect]
     Active Substance: CETIRIZINE HYDROCHLORIDE
     Route: 065
  138. CETIRIZINE HYDROCHLORIDE [Suspect]
     Active Substance: CETIRIZINE HYDROCHLORIDE
     Route: 065
  139. CETIRIZINE HYDROCHLORIDE [Suspect]
     Active Substance: CETIRIZINE HYDROCHLORIDE
     Route: 065
  140. CETIRIZINE HYDROCHLORIDE [Suspect]
     Active Substance: CETIRIZINE HYDROCHLORIDE
     Route: 016
  141. CETIRIZINE HYDROCHLORIDE [Suspect]
     Active Substance: CETIRIZINE HYDROCHLORIDE
     Route: 065
  142. CETIRIZINE HYDROCHLORIDE [Suspect]
     Active Substance: CETIRIZINE HYDROCHLORIDE
     Route: 065
  143. CETIRIZINE HYDROCHLORIDE [Suspect]
     Active Substance: CETIRIZINE HYDROCHLORIDE
     Route: 065
  144. CETIRIZINE HYDROCHLORIDE [Suspect]
     Active Substance: CETIRIZINE HYDROCHLORIDE
     Route: 065
  145. CHLORHEXIDINE GLUCONATE [Suspect]
     Active Substance: CHLORHEXIDINE GLUCONATE
     Indication: Product used for unknown indication
     Route: 061
  146. CHLORHEXIDINE GLUCONATE [Suspect]
     Active Substance: CHLORHEXIDINE GLUCONATE
     Route: 065
  147. CHLORHEXIDINE GLUCONATE [Suspect]
     Active Substance: CHLORHEXIDINE GLUCONATE
     Route: 065
  148. CHOLECALCIFEROL [Suspect]
     Active Substance: CHOLECALCIFEROL
     Indication: Product used for unknown indication
     Route: 065
  149. CIMZIA [Suspect]
     Active Substance: CERTOLIZUMAB PEGOL
     Indication: Psoriasis
     Route: 058
  150. CIMZIA [Suspect]
     Active Substance: CERTOLIZUMAB PEGOL
     Indication: Rheumatoid arthritis
     Route: 058
  151. CIMZIA [Suspect]
     Active Substance: CERTOLIZUMAB PEGOL
     Route: 065
  152. CIMZIA [Suspect]
     Active Substance: CERTOLIZUMAB PEGOL
     Route: 065
  153. CIMZIA [Suspect]
     Active Substance: CERTOLIZUMAB PEGOL
     Route: 065
  154. CIMZIA [Suspect]
     Active Substance: CERTOLIZUMAB PEGOL
     Route: 058
  155. CIMZIA [Suspect]
     Active Substance: CERTOLIZUMAB PEGOL
     Route: 058
  156. CIMZIA [Suspect]
     Active Substance: CERTOLIZUMAB PEGOL
     Route: 065
  157. CORTISONE ACETATE [Suspect]
     Active Substance: CORTISONE ACETATE
     Indication: Rheumatoid arthritis
     Route: 065
  158. CORTISONE ACETATE [Suspect]
     Active Substance: CORTISONE ACETATE
     Route: 048
  159. CORTISONE ACETATE [Suspect]
     Active Substance: CORTISONE ACETATE
     Route: 061
  160. DESOXIMETASONE [Suspect]
     Active Substance: DESOXIMETASONE
     Indication: Rheumatoid arthritis
     Route: 048
  161. DESOXIMETASONE [Suspect]
     Active Substance: DESOXIMETASONE
     Route: 065
  162. DESOXIMETASONE [Suspect]
     Active Substance: DESOXIMETASONE
     Route: 048
  163. DESOXIMETASONE [Suspect]
     Active Substance: DESOXIMETASONE
     Route: 065
  164. DESOXIMETASONE [Suspect]
     Active Substance: DESOXIMETASONE
     Route: 058
  165. DESOXIMETASONE [Suspect]
     Active Substance: DESOXIMETASONE
     Route: 058
  166. DESOXIMETASONE [Suspect]
     Active Substance: DESOXIMETASONE
     Route: 048
  167. DESOXIMETASONE [Suspect]
     Active Substance: DESOXIMETASONE
     Route: 048
  168. DESOXIMETASONE [Suspect]
     Active Substance: DESOXIMETASONE
     Route: 048
  169. DESOXIMETASONE [Suspect]
     Active Substance: DESOXIMETASONE
     Route: 058
  170. DESOXIMETASONE [Suspect]
     Active Substance: DESOXIMETASONE
     Route: 048
  171. DESOXIMETASONE [Suspect]
     Active Substance: DESOXIMETASONE
     Route: 065
  172. DESOXIMETASONE [Suspect]
     Active Substance: DESOXIMETASONE
     Route: 048
  173. DESOXIMETASONE [Suspect]
     Active Substance: DESOXIMETASONE
     Route: 048
  174. DESOXIMETASONE [Suspect]
     Active Substance: DESOXIMETASONE
     Route: 065
  175. DESOXIMETASONE [Suspect]
     Active Substance: DESOXIMETASONE
     Route: 058
  176. DESOXIMETASONE [Suspect]
     Active Substance: DESOXIMETASONE
     Route: 065
  177. DICLOFENAC DIETHYLAMINE [Suspect]
     Active Substance: DICLOFENAC DIETHYLAMINE
     Indication: Product used for unknown indication
     Route: 065
  178. DOMPERIDONE MALEATE [Suspect]
     Active Substance: DOMPERIDONE MALEATE
     Indication: Product used for unknown indication
     Route: 065
  179. ERELZI [Suspect]
     Active Substance: ETANERCEPT-SZZS
     Indication: Rheumatoid arthritis
     Route: 065
  180. ERELZI [Suspect]
     Active Substance: ETANERCEPT-SZZS
     Route: 058
  181. FLUMETHASONE [Suspect]
     Active Substance: FLUMETHASONE
     Indication: Product used for unknown indication
     Route: 065
  182. FLUMETHASONE PIVALATE [Suspect]
     Active Substance: FLUMETHASONE PIVALATE
     Indication: Product used for unknown indication
     Route: 065
  183. FLUMETHASONE PIVALATE [Suspect]
     Active Substance: FLUMETHASONE PIVALATE
     Route: 065
  184. FOLIC ACID [Suspect]
     Active Substance: FOLIC ACID
     Indication: Rheumatoid arthritis
     Route: 065
  185. FOLIC ACID [Suspect]
     Active Substance: FOLIC ACID
     Route: 065
  186. FOLIC ACID [Suspect]
     Active Substance: FOLIC ACID
     Route: 065
  187. FOLIC ACID [Suspect]
     Active Substance: FOLIC ACID
     Route: 065
  188. FOLIC ACID [Suspect]
     Active Substance: FOLIC ACID
     Route: 048
  189. FOLIC ACID [Suspect]
     Active Substance: FOLIC ACID
     Route: 065
  190. FOLIC ACID [Suspect]
     Active Substance: FOLIC ACID
     Route: 058
  191. FOLIC ACID [Suspect]
     Active Substance: FOLIC ACID
     Route: 065
  192. FOLIC ACID [Suspect]
     Active Substance: FOLIC ACID
     Route: 065
  193. FOLIC ACID [Suspect]
     Active Substance: FOLIC ACID
     Route: 048
  194. FOLIC ACID [Suspect]
     Active Substance: FOLIC ACID
     Route: 065
  195. FOLIC ACID [Suspect]
     Active Substance: FOLIC ACID
     Route: 048
  196. FOLIC ACID [Suspect]
     Active Substance: FOLIC ACID
     Route: 048
  197. FOLIC ACID [Suspect]
     Active Substance: FOLIC ACID
     Route: 065
  198. FOSAMAX [Suspect]
     Active Substance: ALENDRONATE SODIUM
     Indication: Rheumatoid arthritis
     Route: 048
  199. FOSAMAX [Suspect]
     Active Substance: ALENDRONATE SODIUM
     Route: 065
  200. FOSAMAX [Suspect]
     Active Substance: ALENDRONATE SODIUM
     Route: 016
  201. FOSAMAX [Suspect]
     Active Substance: ALENDRONATE SODIUM
     Route: 065
  202. FOSAMAX [Suspect]
     Active Substance: ALENDRONATE SODIUM
     Route: 058
  203. GOLD [Suspect]
     Active Substance: GOLD
     Indication: Product used for unknown indication
     Route: 065
  204. GOLD SODIUM THIOMALATE [Suspect]
     Active Substance: GOLD SODIUM THIOMALATE
     Indication: Product used for unknown indication
     Route: 065
  205. GOLIMUMAB [Suspect]
     Active Substance: GOLIMUMAB
     Indication: Prostatic specific antigen
     Route: 058
  206. GOLIMUMAB [Suspect]
     Active Substance: GOLIMUMAB
     Indication: Rheumatoid arthritis
     Route: 058
  207. GOLIMUMAB [Suspect]
     Active Substance: GOLIMUMAB
     Route: 065
  208. HUMIRA [Suspect]
     Active Substance: ADALIMUMAB
     Indication: Rheumatoid arthritis
     Route: 065
  209. HUMIRA [Suspect]
     Active Substance: ADALIMUMAB
     Route: 065
  210. HUMIRA [Suspect]
     Active Substance: ADALIMUMAB
     Route: 058
  211. HUMIRA [Suspect]
     Active Substance: ADALIMUMAB
     Route: 058
  212. HUMIRA [Suspect]
     Active Substance: ADALIMUMAB
     Route: 065
  213. HUMIRA [Suspect]
     Active Substance: ADALIMUMAB
     Route: 058
  214. HUMIRA [Suspect]
     Active Substance: ADALIMUMAB
     Route: 065
  215. HUMIRA [Suspect]
     Active Substance: ADALIMUMAB
     Route: 065
  216. HYDROCORTISONE [Suspect]
     Active Substance: HYDROCORTISONE
     Indication: Product used for unknown indication
     Route: 065
  217. HYDROXYCHLOROQUINE [Suspect]
     Active Substance: HYDROXYCHLOROQUINE
     Indication: Rheumatoid arthritis
     Dosage: UNK, QD
     Route: 048
  218. HYDROXYCHLOROQUINE [Suspect]
     Active Substance: HYDROXYCHLOROQUINE
     Dosage: 400 MG, QD
     Route: 048
  219. HYDROXYCHLOROQUINE [Suspect]
     Active Substance: HYDROXYCHLOROQUINE
     Route: 058
  220. HYDROXYCHLOROQUINE [Suspect]
     Active Substance: HYDROXYCHLOROQUINE
     Route: 048
  221. HYDROXYCHLOROQUINE [Suspect]
     Active Substance: HYDROXYCHLOROQUINE
     Route: 065
  222. HYDROXYCHLOROQUINE [Suspect]
     Active Substance: HYDROXYCHLOROQUINE
     Route: 048
  223. HYDROXYCHLOROQUINE [Suspect]
     Active Substance: HYDROXYCHLOROQUINE
     Route: 058
  224. HYDROXYCHLOROQUINE [Suspect]
     Active Substance: HYDROXYCHLOROQUINE
     Route: 065
  225. HYDROXYCHLOROQUINE [Suspect]
     Active Substance: HYDROXYCHLOROQUINE
     Dosage: 400 MG, QD
     Route: 065
  226. HYDROXYCHLOROQUINE [Suspect]
     Active Substance: HYDROXYCHLOROQUINE
     Dosage: 400 MG, QD
     Route: 048
  227. HYDROXYCHLOROQUINE [Suspect]
     Active Substance: HYDROXYCHLOROQUINE
     Route: 065
  228. HYDROXYCHLOROQUINE [Suspect]
     Active Substance: HYDROXYCHLOROQUINE
     Dosage: 400 MG, QD
     Route: 048
  229. HYDROXYCHLOROQUINE [Suspect]
     Active Substance: HYDROXYCHLOROQUINE
     Route: 058
  230. HYDROXYCHLOROQUINE [Suspect]
     Active Substance: HYDROXYCHLOROQUINE
     Dosage: 400 MG, QD
     Route: 048
  231. HYDROXYCHLOROQUINE [Suspect]
     Active Substance: HYDROXYCHLOROQUINE
     Route: 016
  232. HYDROXYCHLOROQUINE [Suspect]
     Active Substance: HYDROXYCHLOROQUINE
     Dosage: 400 MG, QD
     Route: 065
  233. HYDROXYCHLOROQUINE [Suspect]
     Active Substance: HYDROXYCHLOROQUINE
     Route: 065
  234. HYDROXYCHLOROQUINE [Suspect]
     Active Substance: HYDROXYCHLOROQUINE
     Dosage: 40 MG, QD
     Route: 048
  235. HYDROXYCHLOROQUINE [Suspect]
     Active Substance: HYDROXYCHLOROQUINE
     Route: 065
  236. HYDROXYCHLOROQUINE [Suspect]
     Active Substance: HYDROXYCHLOROQUINE
     Route: 065
  237. HYDROXYCHLOROQUINE [Suspect]
     Active Substance: HYDROXYCHLOROQUINE
     Route: 065
  238. HYDROXYCHLOROQUINE SULFATE [Suspect]
     Active Substance: HYDROXYCHLOROQUINE SULFATE
     Indication: Rheumatoid arthritis
     Route: 048
  239. HYDROXYCHLOROQUINE SULFATE [Suspect]
     Active Substance: HYDROXYCHLOROQUINE SULFATE
     Dosage: 400 MG, QD
     Route: 065
  240. HYDROXYCHLOROQUINE SULFATE [Suspect]
     Active Substance: HYDROXYCHLOROQUINE SULFATE
     Route: 065
  241. HYDROXYCHLOROQUINE SULFATE [Suspect]
     Active Substance: HYDROXYCHLOROQUINE SULFATE
     Route: 065
  242. HYDROXYCHLOROQUINE SULFATE [Suspect]
     Active Substance: HYDROXYCHLOROQUINE SULFATE
     Route: 048
  243. HYDROXYCHLOROQUINE SULFATE [Suspect]
     Active Substance: HYDROXYCHLOROQUINE SULFATE
     Route: 065
  244. HYDROXYCHLOROQUINE SULFATE [Suspect]
     Active Substance: HYDROXYCHLOROQUINE SULFATE
     Dosage: 40 MG, QD
     Route: 065
  245. HYDROXYCHLOROQUINE SULFATE [Suspect]
     Active Substance: HYDROXYCHLOROQUINE SULFATE
     Route: 065
  246. HYDROXYCHLOROQUINE SULFATE [Suspect]
     Active Substance: HYDROXYCHLOROQUINE SULFATE
     Dosage: 400 MG, QD
     Route: 048
  247. HYDROXYCHLOROQUINE SULFATE [Suspect]
     Active Substance: HYDROXYCHLOROQUINE SULFATE
     Route: 065
  248. LAMICTAL [Suspect]
     Active Substance: LAMOTRIGINE
     Indication: Product used for unknown indication
     Route: 048
  249. LAMICTAL [Suspect]
     Active Substance: LAMOTRIGINE
     Route: 048
  250. LAMICTAL [Suspect]
     Active Substance: LAMOTRIGINE
     Route: 048
  251. LAMICTAL [Suspect]
     Active Substance: LAMOTRIGINE
     Route: 048
  252. LAMICTAL [Suspect]
     Active Substance: LAMOTRIGINE
     Route: 048
  253. LAMICTAL [Suspect]
     Active Substance: LAMOTRIGINE
     Route: 048
  254. LEFLUNOMIDE [Suspect]
     Active Substance: LEFLUNOMIDE
     Indication: Rheumatoid arthritis
     Dosage: 10 MG, QD (NOT SPECIFIED)
     Route: 065
  255. LEFLUNOMIDE [Suspect]
     Active Substance: LEFLUNOMIDE
     Dosage: 10 MG, QD
     Route: 065
  256. LEFLUNOMIDE [Suspect]
     Active Substance: LEFLUNOMIDE
     Dosage: 20 MG, QD
     Route: 065
  257. LEFLUNOMIDE [Suspect]
     Active Substance: LEFLUNOMIDE
     Route: 065
  258. LEFLUNOMIDE [Suspect]
     Active Substance: LEFLUNOMIDE
     Route: 065
  259. LEFLUNOMIDE [Suspect]
     Active Substance: LEFLUNOMIDE
     Route: 048
  260. MEGLUMINE [Suspect]
     Active Substance: MEGLUMINE
     Indication: Product used for unknown indication
     Route: 040
  261. METHOTREXATE [Suspect]
     Active Substance: METHOTREXATE
     Indication: Rheumatoid arthritis
     Route: 065
  262. METHOTREXATE [Suspect]
     Active Substance: METHOTREXATE
     Route: 065
  263. METHOTREXATE [Suspect]
     Active Substance: METHOTREXATE
     Dosage: 25 MG, QW
     Route: 048
  264. METHOTREXATE [Suspect]
     Active Substance: METHOTREXATE
     Dosage: 25 MG, BID
     Route: 065
  265. METHOTREXATE [Suspect]
     Active Substance: METHOTREXATE
     Dosage: 20 MG, QW
     Route: 065
  266. METHOTREXATE [Suspect]
     Active Substance: METHOTREXATE
     Route: 065
  267. METHOTREXATE [Suspect]
     Active Substance: METHOTREXATE
     Route: 048
  268. METHOTREXATE [Suspect]
     Active Substance: METHOTREXATE
     Route: 048
  269. METHOTREXATE [Suspect]
     Active Substance: METHOTREXATE
     Dosage: 25 MG, QW
     Route: 048
  270. METHOTREXATE [Suspect]
     Active Substance: METHOTREXATE
     Dosage: 25 MG, BID
     Route: 048
  271. METHOTREXATE [Suspect]
     Active Substance: METHOTREXATE
     Dosage: 25 MG, QW
     Route: 065
  272. METHOTREXATE [Suspect]
     Active Substance: METHOTREXATE
     Route: 016
  273. METHOTREXATE [Suspect]
     Active Substance: METHOTREXATE
     Dosage: 20 MG, QW
     Route: 058
  274. METHOTREXATE [Suspect]
     Active Substance: METHOTREXATE
     Dosage: 20 MG, QD
     Route: 048
  275. METHOTREXATE [Suspect]
     Active Substance: METHOTREXATE
     Dosage: 25 MG, QW
     Route: 048
  276. METHOTREXATE [Suspect]
     Active Substance: METHOTREXATE
     Route: 013
  277. METHOTREXATE [Suspect]
     Active Substance: METHOTREXATE
     Route: 048
  278. METHOTREXATE [Suspect]
     Active Substance: METHOTREXATE
     Dosage: 25 MG, QW
     Route: 065
  279. METHOTREXATE [Suspect]
     Active Substance: METHOTREXATE
     Dosage: 25 MG, QD
     Route: 065
  280. METHOTREXATE [Suspect]
     Active Substance: METHOTREXATE
     Dosage: 25 MG, QW
     Route: 013
  281. METHOTREXATE [Suspect]
     Active Substance: METHOTREXATE
     Dosage: 15 MG, QW
     Route: 058
  282. METHOTREXATE [Suspect]
     Active Substance: METHOTREXATE
     Route: 058
  283. METHYLPREDNISOLONE [Suspect]
     Active Substance: METHYLPREDNISOLONE
     Indication: Product used for unknown indication
     Route: 065
  284. METHYLPREDNISOLONE SODIUM SUCCINATE [Suspect]
     Active Substance: METHYLPREDNISOLONE SODIUM SUCCINATE
     Indication: Product used for unknown indication
     Route: 065
  285. MINOCIN [Suspect]
     Active Substance: MINOCYCLINE HYDROCHLORIDE
     Indication: Rheumatoid arthritis
     Route: 065
  286. MINOCYCLINE [Suspect]
     Active Substance: MINOCYCLINE HYDROCHLORIDE
     Indication: Product used for unknown indication
     Route: 065
  287. MINOCYCLINE HYDROCHLORIDE [Suspect]
     Active Substance: MINOCYCLINE HYDROCHLORIDE
     Indication: Product used for unknown indication
     Route: 065
  288. MYOCHRYSINE [Suspect]
     Active Substance: GOLD SODIUM THIOMALATE
     Indication: Rheumatoid arthritis
     Route: 030
  289. MYRBETRIQ [Suspect]
     Active Substance: MIRABEGRON
     Indication: Product used for unknown indication
     Route: 065
  290. MYRBETRIQ [Suspect]
     Active Substance: MIRABEGRON
     Dosage: 1 DOSAGE FORM, QD (EXTENDED- RELEASE)
     Route: 065
  291. MYRBETRIQ [Suspect]
     Active Substance: MIRABEGRON
     Route: 065
  292. NAPROXEN [Suspect]
     Active Substance: NAPROXEN
     Indication: Product used for unknown indication
     Route: 065
  293. NAPROXEN SODIUM [Suspect]
     Active Substance: NAPROXEN SODIUM
     Indication: Rheumatoid arthritis
     Route: 065
  294. NUCALA [Suspect]
     Active Substance: MEPOLIZUMAB
     Indication: Product used for unknown indication
     Route: 065
  295. ORENCIA [Suspect]
     Active Substance: ABATACEPT
     Indication: Rheumatoid arthritis
     Route: 065
  296. ORENCIA [Suspect]
     Active Substance: ABATACEPT
     Route: 040
  297. ORENCIA [Suspect]
     Active Substance: ABATACEPT
     Route: 040
  298. ORENCIA [Suspect]
     Active Substance: ABATACEPT
     Route: 065
  299. ORENCIA [Suspect]
     Active Substance: ABATACEPT
     Route: 040
  300. ORENCIA [Suspect]
     Active Substance: ABATACEPT
     Route: 065
  301. ORENCIA [Suspect]
     Active Substance: ABATACEPT
     Route: 065
  302. ORENCIA [Suspect]
     Active Substance: ABATACEPT
     Route: 040
  303. ORENCIA [Suspect]
     Active Substance: ABATACEPT
     Route: 065
  304. ORENCIA [Suspect]
     Active Substance: ABATACEPT
     Dosage: 125 MG, QW
     Route: 065
  305. ORENCIA [Suspect]
     Active Substance: ABATACEPT
     Route: 058
  306. ORENCIA [Suspect]
     Active Substance: ABATACEPT
     Route: 065
  307. OXYCODONE [Suspect]
     Active Substance: OXYCODONE
     Indication: Product used for unknown indication
     Route: 065
  308. OXYCODONE TEREPHTHALATE [Suspect]
     Active Substance: OXYCODONE TEREPHTHALATE
     Indication: Product used for unknown indication
     Route: 065
  309. PHENYLEPHRINE HYDROCHLORIDE [Suspect]
     Active Substance: PHENYLEPHRINE HYDROCHLORIDE
     Indication: Rheumatoid arthritis
     Route: 065
  310. PHTHALYLSULFATHIAZOLE [Suspect]
     Active Substance: PHTHALYLSULFATHIAZOLE
     Indication: Rheumatoid arthritis
     Route: 065
  311. PHTHALYLSULFATHIAZOLE [Suspect]
     Active Substance: PHTHALYLSULFATHIAZOLE
     Route: 065
  312. PHTHALYLSULFATHIAZOLE [Suspect]
     Active Substance: PHTHALYLSULFATHIAZOLE
     Dosage: 1000 MG, BID
     Route: 048
  313. PHTHALYLSULFATHIAZOLE [Suspect]
     Active Substance: PHTHALYLSULFATHIAZOLE
     Route: 040
  314. PHTHALYLSULFATHIAZOLE [Suspect]
     Active Substance: PHTHALYLSULFATHIAZOLE
     Route: 058
  315. PHTHALYLSULFATHIAZOLE [Suspect]
     Active Substance: PHTHALYLSULFATHIAZOLE
     Route: 065
  316. PHTHALYLSULFATHIAZOLE [Suspect]
     Active Substance: PHTHALYLSULFATHIAZOLE
     Route: 048
  317. PHTHALYLSULFATHIAZOLE [Suspect]
     Active Substance: PHTHALYLSULFATHIAZOLE
     Route: 065
  318. PHTHALYLSULFATHIAZOLE [Suspect]
     Active Substance: PHTHALYLSULFATHIAZOLE
     Route: 065
  319. PREDNISONE [Suspect]
     Active Substance: PREDNISONE
     Indication: Rheumatoid arthritis
     Route: 065
  320. PREDNISONE [Suspect]
     Active Substance: PREDNISONE
     Route: 048
  321. PREDNISONE [Suspect]
     Active Substance: PREDNISONE
     Route: 065
  322. PREDNISONE [Suspect]
     Active Substance: PREDNISONE
     Route: 065
  323. PREDNISONE [Suspect]
     Active Substance: PREDNISONE
     Dosage: 20 MG, QD
     Route: 048
  324. PREDNISONE [Suspect]
     Active Substance: PREDNISONE
     Route: 065
  325. PREDNISONE [Suspect]
     Active Substance: PREDNISONE
     Route: 065
  326. PREDNISONE [Suspect]
     Active Substance: PREDNISONE
     Route: 048
  327. PREDNISONE [Suspect]
     Active Substance: PREDNISONE
     Dosage: 50 MG, QD
     Route: 048
  328. PREDNISONE [Suspect]
     Active Substance: PREDNISONE
     Route: 048
  329. PSEUDOEPHEDRINE HYDROCHLORIDE [Suspect]
     Active Substance: PSEUDOEPHEDRINE HYDROCHLORIDE
     Indication: Rheumatoid arthritis
     Route: 065
  330. PSEUDOEPHEDRINE HYDROCHLORIDE [Suspect]
     Active Substance: PSEUDOEPHEDRINE HYDROCHLORIDE
     Route: 065
  331. PSEUDOEPHEDRINE HYDROCHLORIDE [Suspect]
     Active Substance: PSEUDOEPHEDRINE HYDROCHLORIDE
     Route: 065
  332. PSEUDOEPHEDRINE HYDROCHLORIDE [Suspect]
     Active Substance: PSEUDOEPHEDRINE HYDROCHLORIDE
     Route: 065
  333. CETIRIZINE HYDROCHLORIDE\PSEUDOEPHEDRINE HYDROCHLORIDE [Suspect]
     Active Substance: CETIRIZINE HYDROCHLORIDE\PSEUDOEPHEDRINE HYDROCHLORIDE
     Indication: Rheumatoid arthritis
     Route: 040
  334. CETIRIZINE HYDROCHLORIDE\PSEUDOEPHEDRINE HYDROCHLORIDE [Suspect]
     Active Substance: CETIRIZINE HYDROCHLORIDE\PSEUDOEPHEDRINE HYDROCHLORIDE
     Route: 065
  335. CETIRIZINE HYDROCHLORIDE\PSEUDOEPHEDRINE HYDROCHLORIDE [Suspect]
     Active Substance: CETIRIZINE HYDROCHLORIDE\PSEUDOEPHEDRINE HYDROCHLORIDE
     Route: 065
  336. CETIRIZINE HYDROCHLORIDE\PSEUDOEPHEDRINE HYDROCHLORIDE [Suspect]
     Active Substance: CETIRIZINE HYDROCHLORIDE\PSEUDOEPHEDRINE HYDROCHLORIDE
     Route: 065
  337. CETIRIZINE HYDROCHLORIDE\PSEUDOEPHEDRINE HYDROCHLORIDE [Suspect]
     Active Substance: CETIRIZINE HYDROCHLORIDE\PSEUDOEPHEDRINE HYDROCHLORIDE
     Route: 065
  338. CETIRIZINE HYDROCHLORIDE\PSEUDOEPHEDRINE HYDROCHLORIDE [Suspect]
     Active Substance: CETIRIZINE HYDROCHLORIDE\PSEUDOEPHEDRINE HYDROCHLORIDE
     Route: 065
  339. CETIRIZINE HYDROCHLORIDE\PSEUDOEPHEDRINE HYDROCHLORIDE [Suspect]
     Active Substance: CETIRIZINE HYDROCHLORIDE\PSEUDOEPHEDRINE HYDROCHLORIDE
     Route: 065
  340. REMICADE [Suspect]
     Active Substance: INFLIXIMAB
     Indication: Rheumatoid arthritis
     Route: 040
  341. REMICADE [Suspect]
     Active Substance: INFLIXIMAB
     Route: 040
  342. REMICADE [Suspect]
     Active Substance: INFLIXIMAB
     Route: 040
  343. REMICADE [Suspect]
     Active Substance: INFLIXIMAB
     Dosage: 500 MG, QD
     Route: 040
  344. REMICADE [Suspect]
     Active Substance: INFLIXIMAB
     Route: 058
  345. REMICADE [Suspect]
     Active Substance: INFLIXIMAB
     Route: 065
  346. REMICADE [Suspect]
     Active Substance: INFLIXIMAB
     Route: 040
  347. REMICADE [Suspect]
     Active Substance: INFLIXIMAB
     Route: 058
  348. SIMPONI [Suspect]
     Active Substance: GOLIMUMAB
     Indication: Rheumatoid arthritis
     Route: 058
  349. SIMPONI [Suspect]
     Active Substance: GOLIMUMAB
     Route: 065
  350. SIMPONI [Suspect]
     Active Substance: GOLIMUMAB
     Route: 065
  351. SIMPONI [Suspect]
     Active Substance: GOLIMUMAB
     Route: 065
  352. SIMPONI [Suspect]
     Active Substance: GOLIMUMAB
     Route: 058
  353. STELARA [Suspect]
     Active Substance: USTEKINUMAB
     Indication: Rheumatoid arthritis
     Route: 058
  354. STELARA [Suspect]
     Active Substance: USTEKINUMAB
     Route: 065
  355. SULFASALAZINE [Suspect]
     Active Substance: SULFASALAZINE
     Indication: Rheumatoid arthritis
     Route: 048
  356. SULFASALAZINE [Suspect]
     Active Substance: SULFASALAZINE
     Route: 058
  357. SULFASALAZINE [Suspect]
     Active Substance: SULFASALAZINE
     Dosage: 1 DOSAGE FORM, BID
     Route: 048
  358. SULFASALAZINE [Suspect]
     Active Substance: SULFASALAZINE
     Dosage: 300 MG, QD
     Route: 065
  359. SULFASALAZINE [Suspect]
     Active Substance: SULFASALAZINE
     Route: 058
  360. SULFASALAZINE [Suspect]
     Active Substance: SULFASALAZINE
     Dosage: 1000 MG, BID
     Route: 048
  361. SULFASALAZINE [Suspect]
     Active Substance: SULFASALAZINE
     Route: 065
  362. SULFASALAZINE [Suspect]
     Active Substance: SULFASALAZINE
     Route: 065
  363. SULFASALAZINE [Suspect]
     Active Substance: SULFASALAZINE
     Route: 065
  364. SULFASALAZINE [Suspect]
     Active Substance: SULFASALAZINE
     Route: 058
  365. SULFASALAZINE [Suspect]
     Active Substance: SULFASALAZINE
     Route: 048
  366. SULFASALAZINE [Suspect]
     Active Substance: SULFASALAZINE
     Dosage: 1 G, QD
     Route: 065
  367. SULFASALAZINE [Suspect]
     Active Substance: SULFASALAZINE
     Dosage: 1 G, BID
     Route: 058
  368. SULFASALAZINE [Suspect]
     Active Substance: SULFASALAZINE
     Dosage: 1 DOSAGE FORM, BID
     Route: 048
  369. SULFASALAZINE [Suspect]
     Active Substance: SULFASALAZINE
     Dosage: 2 MG, BID
     Route: 058
  370. SULFASALAZINE [Suspect]
     Active Substance: SULFASALAZINE
     Route: 065
  371. SULFASALAZINE [Suspect]
     Active Substance: SULFASALAZINE
     Route: 048
  372. SULFASALAZINE [Suspect]
     Active Substance: SULFASALAZINE
     Dosage: 1 G, QD
     Route: 065
  373. SULFASALAZINE [Suspect]
     Active Substance: SULFASALAZINE
     Route: 048
  374. SULFASALAZINE [Suspect]
     Active Substance: SULFASALAZINE
     Route: 058
  375. SULFASALAZINE [Suspect]
     Active Substance: SULFASALAZINE
     Route: 016
  376. SULFASALAZINE [Suspect]
     Active Substance: SULFASALAZINE
     Dosage: 2 G, QD
     Route: 065
  377. SULFASALAZINE [Suspect]
     Active Substance: SULFASALAZINE
     Route: 065
  378. SULFASALAZINE [Suspect]
     Active Substance: SULFASALAZINE
     Route: 048
  379. SULFASALAZINE [Suspect]
     Active Substance: SULFASALAZINE
     Route: 048
  380. SULFASALAZINE [Suspect]
     Active Substance: SULFASALAZINE
     Dosage: 2 DOSAGE FORM, QD
     Route: 048
  381. SULFASALAZINE [Suspect]
     Active Substance: SULFASALAZINE
     Dosage: 2000 MILLIGRAM, QD
     Route: 048
  382. SULFASALAZINE [Suspect]
     Active Substance: SULFASALAZINE
     Dosage: 4 MILLIGRAM, QD
     Route: 058
  383. TOCILIZUMAB [Suspect]
     Active Substance: TOCILIZUMAB
     Indication: Rheumatoid arthritis
     Route: 065
  384. TOCILIZUMAB [Suspect]
     Active Substance: TOCILIZUMAB
     Route: 040
  385. TOCILIZUMAB [Suspect]
     Active Substance: TOCILIZUMAB
     Route: 058
  386. TOCILIZUMAB [Suspect]
     Active Substance: TOCILIZUMAB
     Route: 058
  387. TOCILIZUMAB [Suspect]
     Active Substance: TOCILIZUMAB
     Route: 016
  388. TOCILIZUMAB [Suspect]
     Active Substance: TOCILIZUMAB
     Route: 040
  389. TOCILIZUMAB [Suspect]
     Active Substance: TOCILIZUMAB
     Route: 065
  390. TOFACITINIB CITRATE [Suspect]
     Active Substance: TOFACITINIB CITRATE
     Indication: Rheumatoid arthritis
     Dosage: 10 MG, QD
     Route: 065
  391. TOFACITINIB CITRATE [Suspect]
     Active Substance: TOFACITINIB CITRATE
     Dosage: 10 MG, QD
     Route: 048
  392. TOPIRAMATE [Suspect]
     Active Substance: TOPIRAMATE
     Indication: Migraine
     Route: 065
  393. TOPIRAMATE [Suspect]
     Active Substance: TOPIRAMATE
     Dosage: 3 MG, QD
     Route: 065
  394. TOPIRAMATE [Suspect]
     Active Substance: TOPIRAMATE
     Dosage: 25 MG, QD
     Route: 065
  395. TOPIRAMATE [Suspect]
     Active Substance: TOPIRAMATE
     Dosage: 25 MG, QD
     Route: 065
  396. TRAMADOL HYDROCHLORIDE [Suspect]
     Active Substance: TRAMADOL HYDROCHLORIDE
     Indication: Product used for unknown indication
     Route: 065
  397. TRIAMCINOLONE ACETONIDE [Suspect]
     Active Substance: TRIAMCINOLONE ACETONIDE
     Indication: Rheumatoid arthritis
     Route: 014
  398. USTEKINUMAB [Suspect]
     Active Substance: USTEKINUMAB
     Indication: Product used for unknown indication
     Route: 065
  399. USTEKINUMAB [Suspect]
     Active Substance: USTEKINUMAB
     Route: 058
  400. USTEKINUMAB [Suspect]
     Active Substance: USTEKINUMAB
     Route: 058
  401. VITAMIN C [Suspect]
     Active Substance: ASCORBIC ACID
     Indication: Product used for unknown indication
     Route: 065
  402. XELJANZ [Suspect]
     Active Substance: TOFACITINIB CITRATE
     Indication: Rheumatoid arthritis
     Route: 065
  403. XELJANZ [Suspect]
     Active Substance: TOFACITINIB CITRATE
     Dosage: 10 MG, BID
     Route: 048
  404. XELJANZ [Suspect]
     Active Substance: TOFACITINIB CITRATE
     Route: 065
  405. XELJANZ [Suspect]
     Active Substance: TOFACITINIB CITRATE
     Route: 048
  406. XELJANZ [Suspect]
     Active Substance: TOFACITINIB CITRATE
     Route: 065
  407. XELJANZ [Suspect]
     Active Substance: TOFACITINIB CITRATE
     Dosage: 5 MG, BID
     Route: 048
  408. XELJANZ [Suspect]
     Active Substance: TOFACITINIB CITRATE
     Route: 065
  409. XELJANZ [Suspect]
     Active Substance: TOFACITINIB CITRATE
     Dosage: 5 MG, BID
     Route: 065
  410. XELJANZ [Suspect]
     Active Substance: TOFACITINIB CITRATE
     Route: 065
  411. TOFACITINIB [Suspect]
     Active Substance: TOFACITINIB
     Indication: Rheumatoid arthritis
     Dosage: 10 MG, QD
     Route: 065
  412. TOFACITINIB [Suspect]
     Active Substance: TOFACITINIB
     Indication: Rheumatoid arthritis
     Route: 065
  413. TOFACITINIB [Suspect]
     Active Substance: TOFACITINIB
     Indication: Rheumatoid arthritis
     Route: 065
  414. GOLD SODIUM THIOMALATE [Suspect]
     Active Substance: GOLD SODIUM THIOMALATE
     Indication: Product used for unknown indication
     Route: 065
  415. GOLD SODIUM THIOMALATE [Suspect]
     Active Substance: GOLD SODIUM THIOMALATE
     Route: 065
  416. GOLD SODIUM THIOMALATE [Suspect]
     Active Substance: GOLD SODIUM THIOMALATE
     Route: 048
  417. SIRUKUMAB [Suspect]
     Active Substance: SIRUKUMAB
     Indication: Product used for unknown indication
     Route: 065
  418. SIRUKUMAB [Suspect]
     Active Substance: SIRUKUMAB
     Route: 065
  419. SULFASALAZINE [Suspect]
     Active Substance: SULFASALAZINE
     Indication: Rheumatoid arthritis
     Route: 065
  420. SULFASALAZINE [Suspect]
     Active Substance: SULFASALAZINE
     Indication: Rheumatoid arthritis
  421. SULFASALAZINE [Suspect]
     Active Substance: SULFASALAZINE
     Indication: Rheumatoid arthritis
  422. RAMIPRIL [Suspect]
     Active Substance: RAMIPRIL
     Indication: Rheumatoid arthritis
     Route: 040
  423. RAMIPRIL [Suspect]
     Active Substance: RAMIPRIL
     Route: 065
  424. RAMIPRIL [Suspect]
     Active Substance: RAMIPRIL
     Route: 016
  425. RANITIDINE [Suspect]
     Active Substance: RANITIDINE
     Indication: Product used for unknown indication
     Route: 065
  426. METHOTREXATE SODIUM [Suspect]
     Active Substance: METHOTREXATE SODIUM
     Indication: Rheumatoid arthritis
     Route: 065
  427. METHOTREXATE SODIUM [Suspect]
     Active Substance: METHOTREXATE SODIUM
     Route: 065
  428. METHOTREXATE SODIUM [Suspect]
     Active Substance: METHOTREXATE SODIUM
     Route: 058
  429. METHOTREXATE SODIUM [Suspect]
     Active Substance: METHOTREXATE SODIUM
     Dosage: 15 MILLIGRAM, QWK
     Route: 058
  430. METHOTREXATE SODIUM [Suspect]
     Active Substance: METHOTREXATE SODIUM
     Dosage: 25 MILLIGRAM, QWK
     Route: 048
  431. METHOTREXATE SODIUM [Suspect]
     Active Substance: METHOTREXATE SODIUM
     Dosage: 50 MILLIGRAM, QD
     Route: 065
  432. METHOTREXATE SODIUM [Suspect]
     Active Substance: METHOTREXATE SODIUM
     Route: 048
  433. METHOTREXATE SODIUM [Suspect]
     Active Substance: METHOTREXATE SODIUM
     Dosage: 20 MILLIGRAM, QWK
     Route: 065
  434. METHOTREXATE SODIUM [Suspect]
     Active Substance: METHOTREXATE SODIUM
     Route: 065
  435. METHOTREXATE SODIUM [Suspect]
     Active Substance: METHOTREXATE SODIUM
     Route: 048
  436. METHOTREXATE SODIUM [Suspect]
     Active Substance: METHOTREXATE SODIUM
     Dosage: 25 MILLIGRAM, QWK
     Route: 065
  437. METHOTREXATE SODIUM [Suspect]
     Active Substance: METHOTREXATE SODIUM
     Route: 016
  438. METHOTREXATE SODIUM [Suspect]
     Active Substance: METHOTREXATE SODIUM
     Dosage: 20 MILLIGRAM, QWK
     Route: 058
  439. METHOTREXATE SODIUM [Suspect]
     Active Substance: METHOTREXATE SODIUM
     Dosage: 20 MILLIGRAM, QD
     Route: 048
  440. METHOTREXATE SODIUM [Suspect]
     Active Substance: METHOTREXATE SODIUM
     Route: 013
  441. METHOTREXATE SODIUM [Suspect]
     Active Substance: METHOTREXATE SODIUM
     Route: 048
  442. METHOTREXATE SODIUM [Suspect]
     Active Substance: METHOTREXATE SODIUM
     Dosage: 25 MILLIGRAM, QD
     Route: 065
  443. METHOTREXATE SODIUM [Suspect]
     Active Substance: METHOTREXATE SODIUM
     Dosage: 25 MILLIGRAM, QWK
     Route: 013
  444. METHOTREXATE SODIUM [Suspect]
     Active Substance: METHOTREXATE SODIUM
     Route: 065
  445. METHOTREXATE SODIUM [Suspect]
     Active Substance: METHOTREXATE SODIUM
     Route: 058
  446. METHOTREXATE SODIUM [Suspect]
     Active Substance: METHOTREXATE SODIUM
     Route: 065
  447. METHOTREXATE SODIUM [Suspect]
     Active Substance: METHOTREXATE SODIUM
     Dosage: 15 MG, QW
     Route: 058
  448. METHOTREXATE SODIUM [Suspect]
     Active Substance: METHOTREXATE SODIUM
     Dosage: 25 MG, QW
     Route: 048
  449. METHOTREXATE SODIUM [Suspect]
     Active Substance: METHOTREXATE SODIUM
     Dosage: 50 MG, QD
     Route: 065
  450. METHOTREXATE SODIUM [Suspect]
     Active Substance: METHOTREXATE SODIUM
     Route: 048
  451. METHOTREXATE SODIUM [Suspect]
     Active Substance: METHOTREXATE SODIUM
     Route: 065
  452. METHOTREXATE SODIUM [Suspect]
     Active Substance: METHOTREXATE SODIUM
     Route: 065
  453. METHOTREXATE SODIUM [Suspect]
     Active Substance: METHOTREXATE SODIUM
     Route: 048
  454. METHOTREXATE SODIUM [Suspect]
     Active Substance: METHOTREXATE SODIUM
     Dosage: 25 MG, QW
     Route: 065
  455. METHOTREXATE SODIUM [Suspect]
     Active Substance: METHOTREXATE SODIUM
     Route: 016
  456. METHOTREXATE SODIUM [Suspect]
     Active Substance: METHOTREXATE SODIUM
     Dosage: 20 MG, QW
     Route: 058
  457. METHOTREXATE SODIUM [Suspect]
     Active Substance: METHOTREXATE SODIUM
     Dosage: 20 MG, QD
     Route: 048
  458. METHOTREXATE SODIUM [Suspect]
     Active Substance: METHOTREXATE SODIUM
     Route: 013
  459. METHOTREXATE SODIUM [Suspect]
     Active Substance: METHOTREXATE SODIUM
     Route: 048
  460. METHOTREXATE SODIUM [Suspect]
     Active Substance: METHOTREXATE SODIUM
     Dosage: 25 MG, QD
     Route: 065
  461. METHOTREXATE SODIUM [Suspect]
     Active Substance: METHOTREXATE SODIUM
     Dosage: 25 MG, QW
     Route: 013
  462. METFORMIN HYDROCHLORIDE [Suspect]
     Active Substance: METFORMIN HYDROCHLORIDE
     Indication: Product used for unknown indication
     Route: 040
  463. TETRACYCLINE HYDROCHLORIDE [Suspect]
     Active Substance: TETRACYCLINE HYDROCHLORIDE
     Indication: Rheumatoid arthritis
     Route: 065

REACTIONS (16)
  - Wound infection [Fatal]
  - Obesity [Fatal]
  - Back injury [Fatal]
  - Gait inability [Fatal]
  - Osteoarthritis [Fatal]
  - Paraesthesia [Fatal]
  - Peripheral swelling [Fatal]
  - Peripheral venous disease [Fatal]
  - Stomatitis [Fatal]
  - Taste disorder [Fatal]
  - Urticaria [Fatal]
  - Weight increased [Fatal]
  - Wheezing [Fatal]
  - Product quality issue [Fatal]
  - Intentional product use issue [Fatal]
  - Off label use [Fatal]
